FAERS Safety Report 8539215-X (Version None)
Quarter: 2012Q3

REPORT INFORMATION
  Report Type: 
  Country: None (occurrence: None)
  Receive Date: 20120726
  Receipt Date: 20120724
  Transmission Date: 20120928
  Serious: Yes (Hospitalization, Other)
  Sender: FDA-Public Use
  Company Number: US-PFIZER INC-2012179265

PATIENT
  Sex: Female
  Weight: 65.76 kg

DRUGS (2)
  1. LYRICA [Suspect]
     Dosage: 200 MG, 2X/DAY
     Route: 048
     Dates: start: 20120705
  2. LYRICA [Suspect]
     Indication: FIBROMYALGIA
     Dosage: 200 MG, 2X/DAY
     Route: 048
     Dates: start: 20090101, end: 20110901

REACTIONS (6)
  - PAIN [None]
  - LOWER LIMB FRACTURE [None]
  - GAIT DISTURBANCE [None]
  - NECROSIS [None]
  - FALL [None]
  - BREAST CANCER [None]
